FAERS Safety Report 6320357-4 (Version None)
Quarter: 2009Q3

REPORT INFORMATION
  Report Type: 
  Country: None (occurrence: None)
  Receive Date: 20090822
  Receipt Date: 20081103
  Transmission Date: 20100115
  Serious: No
  Sender: FDA-Public Use
  Company Number: US-ABBOTT-08P-163-0485474-00

PATIENT
  Sex: Male
  Weight: 77.18 kg

DRUGS (2)
  1. NIASPAN [Suspect]
     Indication: BLOOD CHOLESTEROL INCREASED
     Route: 048
     Dates: start: 20080922
  2. VITAMINS [Concomitant]
     Indication: VITAMIN SUPPLEMENTATION
     Route: 048

REACTIONS (1)
  - VERTIGO [None]
